FAERS Safety Report 23559957 (Version 1)
Quarter: 2024Q1

REPORT INFORMATION
  Report Type: Other
  Country: US (occurrence: US)
  Receive Date: 20240223
  Receipt Date: 20240223
  Transmission Date: 20240410
  Serious: Yes (Other)
  Sender: FDA-Public Use
  Company Number: US-Merck Healthcare KGaA-2024008293

PATIENT
  Age: 53 Year
  Sex: Male

DRUGS (3)
  1. LEVOTHYROXINE [Suspect]
     Active Substance: LEVOTHYROXINE\LEVOTHYROXINE SODIUM
     Indication: Post procedural hypothyroidism
  2. LENVATINIB [Concomitant]
     Active Substance: LENVATINIB
     Indication: Huerthle cell carcinoma
     Dosage: UPTO 24 MG DAILY
  3. CABOZANTINIB [Concomitant]
     Active Substance: CABOZANTINIB
     Indication: Huerthle cell carcinoma

REACTIONS (1)
  - Hyperthyroidism [Recovering/Resolving]
